FAERS Safety Report 8814990 (Version 2)
Quarter: 2012Q4

REPORT INFORMATION
  Report Type: Report from Study
  Country: JP (occurrence: JP)
  Receive Date: 20120928
  Receipt Date: 20121111
  Transmission Date: 20130627
  Serious: Yes (Death, Hospitalization, Other)
  Sender: FDA-Public Use
  Company Number: PHHY2012JP075404

PATIENT
  Age: 84 Year
  Sex: Male
  Weight: 51 kg

DRUGS (13)
  1. AFINITOR [Suspect]
     Indication: METASTATIC RENAL CELL CARCINOMA
     Dosage: 10 mg, UNK
     Route: 048
     Dates: start: 20120621, end: 20120803
  2. AFINITOR [Suspect]
     Dosage: 5 mg, UNK
     Route: 048
     Dates: start: 20120912, end: 20120923
  3. AMLODIPINE [Concomitant]
     Dosage: 5 mg, UNK
     Route: 048
     Dates: start: 20120621
  4. ALLOZYM [Concomitant]
     Dosage: 100 mg, UNK
     Route: 048
     Dates: start: 20120621
  5. MICARDIS [Concomitant]
     Dosage: 40 mg, UNK
     Route: 048
     Dates: start: 20120621, end: 20120720
  6. BENIDIPINE HYDROCHLORIDE [Concomitant]
     Dosage: 4 mg, UNK
     Route: 048
     Dates: start: 20120621
  7. CIBENZOLINE SUCCINATE [Concomitant]
     Dosage: 100 mg, UNK
     Route: 048
     Dates: start: 20120621
  8. MELOXICAM [Concomitant]
     Indication: METASTATIC RENAL CELL CARCINOMA
     Dosage: 10 mg, UNK
     Route: 048
     Dates: start: 20120621, end: 20120720
  9. OXYCONTIN [Concomitant]
     Indication: METASTATIC RENAL CELL CARCINOMA
     Dosage: 10 mg, UNK
     Route: 048
     Dates: start: 20120623, end: 20120922
  10. NOVAMIN [Concomitant]
     Indication: PROPHYLAXIS
     Dosage: 15 mg, UNK
     Route: 048
     Dates: start: 20120623, end: 20120706
  11. UREPEARL [Concomitant]
     Indication: PROPHYLAXIS
     Dosage: 0.2 g, UNK
     Dates: start: 20120626, end: 20120720
  12. NAIXAN [Concomitant]
     Indication: METASTATIC RENAL CELL CARCINOMA
     Dosage: 300 mg, UNK
     Route: 048
     Dates: start: 20120818
  13. FAMOTIDINE [Concomitant]
     Indication: PROPHYLAXIS
     Dosage: 40 mg, UNK
     Route: 048
     Dates: start: 20120821

REACTIONS (10)
  - Disseminated intravascular coagulation [Fatal]
  - Lymphocyte count decreased [Fatal]
  - Interstitial lung disease [Not Recovered/Not Resolved]
  - Pneumonia bacterial [Not Recovered/Not Resolved]
  - Fatigue [Not Recovered/Not Resolved]
  - C-reactive protein increased [Not Recovered/Not Resolved]
  - Pleural adhesion [Not Recovered/Not Resolved]
  - Dyspnoea exertional [Recovered/Resolved]
  - Dyspnoea [Not Recovered/Not Resolved]
  - Pyrexia [Not Recovered/Not Resolved]
